FAERS Safety Report 10239018 (Version 1)
Quarter: 2014Q2

REPORT INFORMATION
  Report Type: Spontaneous
  Country: US (occurrence: None)
  Receive Date: 20140613
  Receipt Date: 20140613
  Transmission Date: 20141212
  Serious: Yes (Disabling, Other)
  Sender: FDA-Public Use
  Company Number: None

PATIENT
  Age: 52 Year
  Sex: Female
  Weight: 58.06 kg

DRUGS (1)
  1. CLINDAMYCIN [Suspect]
     Indication: TOOTH ABSCESS
     Dosage: 1-2 PILL FOUR TIMES DAILY TAKEN BY MOUTH
     Route: 048
     Dates: start: 20140521, end: 20140525

REACTIONS (1)
  - Clostridium difficile infection [None]
